FAERS Safety Report 5388520-7 (Version None)
Quarter: 2007Q3

REPORT INFORMATION
  Report Type: 
  Country: None (occurrence: None)
  Receive Date: 20070716
  Receipt Date: 20070430
  Transmission Date: 20080115
  Serious: No
  Sender: FDA-Public Use
  Company Number: US-BRISTOL-MYERS SQUIBB COMPANY-13765193

PATIENT
  Age: 73 Year
  Sex: Female
  Weight: 62 kg

DRUGS (4)
  1. SINEMET CR [Suspect]
     Indication: PARKINSON'S DISEASE
  2. SINEMET [Concomitant]
     Indication: PARKINSON'S DISEASE
  3. COLACE [Concomitant]
  4. ASPIRIN [Concomitant]

REACTIONS (1)
  - TREMOR [None]
